FAERS Safety Report 23587877 (Version 1)
Quarter: 2024Q1

REPORT INFORMATION
  Report Type: Report from Study
  Country: KR (occurrence: KR)
  Receive Date: 20240301
  Receipt Date: 20240301
  Transmission Date: 20240410
  Serious: Yes (Death, Life-Threatening, Other)
  Sender: FDA-Public Use
  Company Number: KR-SA-2024SA064487

PATIENT
  Age: 79 Year
  Sex: Female

DRUGS (2)
  1. CEMIPLIMAB [Suspect]
     Active Substance: CEMIPLIMAB
     Indication: Clear cell renal cell carcinoma
     Dosage: 350 MG, Q3W
     Route: 041
  2. FIANLIMAB [Suspect]
     Active Substance: FIANLIMAB
     Indication: Clear cell renal cell carcinoma
     Dosage: 1600 MG, Q3W
     Route: 041

REACTIONS (1)
  - Colitis ischaemic [Fatal]
